FAERS Safety Report 11888628 (Version 1)
Quarter: 2016Q1

REPORT INFORMATION
  Report Type: Spontaneous
  Country: US (occurrence: None)
  Receive Date: 20160104
  Receipt Date: 20160104
  Transmission Date: 20160526
  Serious: Yes (Hospitalization)
  Sender: FDA-Public Use
  Company Number: None

PATIENT
  Age: 59 Year
  Sex: Male
  Weight: 76.1 kg

DRUGS (1)
  1. LEVOFLOXACIN. [Suspect]
     Active Substance: LEVOFLOXACIN
     Dosage: 250 MG OTHER IV
     Route: 042
     Dates: start: 20151023, end: 20151026

REACTIONS (6)
  - Eye pain [None]
  - Lip haemorrhage [None]
  - Stevens-Johnson syndrome [None]
  - Dermatitis exfoliative [None]
  - Blister [None]
  - Rash generalised [None]

NARRATIVE: CASE EVENT DATE: 20151026
